FAERS Safety Report 10673463 (Version 1)
Quarter: 2014Q4

REPORT INFORMATION
  Report Type: Spontaneous
  Country: US (occurrence: US)
  Receive Date: 20141224
  Receipt Date: 20141224
  Transmission Date: 20150529
  Serious: Yes (Disabling)
  Sender: FDA-Public Use
  Company Number: US-MERCK-1412USA009212

PATIENT
  Sex: Male

DRUGS (3)
  1. RIBASPHERE [Suspect]
     Active Substance: RIBAVIRIN
     Indication: HEPATITIS C
     Dosage: UNK
     Route: 048
     Dates: start: 201105, end: 2012
  2. VICTRELIS [Suspect]
     Active Substance: BOCEPREVIR
     Indication: HEPATITIS C
     Dosage: UNK
     Route: 048
     Dates: start: 201105, end: 2012
  3. PEGINTRON [Suspect]
     Active Substance: PEGINTERFERON ALFA-2B
     Indication: HEPATITIS C
     Dosage: REDIPEN
     Dates: start: 201105, end: 2012

REACTIONS (3)
  - Intervertebral disc degeneration [Unknown]
  - Spinal column stenosis [Unknown]
  - Rheumatoid arthritis [Unknown]

NARRATIVE: CASE EVENT DATE: 2014
